FAERS Safety Report 19798380 (Version 1)
Quarter: 2021Q3

REPORT INFORMATION
  Report Type: Spontaneous
  Country: US (occurrence: US)
  Receive Date: 20210907
  Receipt Date: 20210907
  Transmission Date: 20211014
  Serious: No
  Sender: FDA-Public Use
  Company Number: US-PFIZER INC-2021350884

PATIENT
  Sex: Male

DRUGS (1)
  1. LORBRENA [Suspect]
     Active Substance: LORLATINIB
     Indication: THROAT CANCER
     Dosage: 100 MG

REACTIONS (3)
  - Dysphagia [Unknown]
  - Product use complaint [Unknown]
  - Off label use [Unknown]
